FAERS Safety Report 9783025 (Version 1)
Quarter: 2013Q4

REPORT INFORMATION
  Report Type: Spontaneous
  Country: US (occurrence: None)
  Receive Date: 20131223
  Receipt Date: 20131223
  Transmission Date: 20140711
  Serious: Yes (Other)
  Sender: FDA-Public Use
  Company Number: EUS-2011-00797

PATIENT
  Age: 17 Year
  Sex: Male

DRUGS (3)
  1. ERWINASE (ASPARAGINASE) [Suspect]
     Indication: ACUTE LYMPHOCYTIC LEUKAEMIA
     Dosage: (40000 IU), INTRAMUSCUALAR
  2. DEXAMETHASONE (DEXAMETHASONE) (5 MG/M2) (DEXAMETHASONE) [Concomitant]
  3. PREDNISONE (PREDNISOLONE) (PREDNISOLONE) [Concomitant]

REACTIONS (1)
  - Hyperglycaemia [None]
